FAERS Safety Report 4996599-7 (Version None)
Quarter: 2006Q2

REPORT INFORMATION
  Report Type: 
  Country: None (occurrence: None)
  Receive Date: 20060505
  Receipt Date: 20060426
  Transmission Date: 20061013
  Serious: Yes (Other)
  Sender: FDA-Public Use
  Company Number: 2006056972

PATIENT

DRUGS (4)
  1. LYRICA [Suspect]
     Indication: ILL-DEFINED DISORDER
  2. OPIOIDS (OPIOIDS) [Suspect]
     Indication: ILL-DEFINED DISORDER
  3. BENZODIAZEPINE DERIVATIVES (BENZODIAZEPINE DERIVATIVES) [Suspect]
     Indication: ILL-DEFINED DISORDER
  4. ANXIOLYTICS (ANXIOLYTICS) [Suspect]
     Indication: ILL-DEFINED DISORDER

REACTIONS (1)
  - SUBARACHNOID HAEMORRHAGE [None]
